FAERS Safety Report 8180820-0 (Version None)
Quarter: 2012Q1

REPORT INFORMATION
  Report Type: 
  Country: None (occurrence: None)
  Receive Date: 20120302
  Receipt Date: 20120221
  Transmission Date: 20120608
  Serious: Yes (Hospitalization)
  Sender: FDA-Public Use
  Company Number: DE-ROCHE-1042516

PATIENT
  Sex: Female
  Weight: 57.3 kg

DRUGS (5)
  1. FLUOROURACIL [Suspect]
     Route: 042
     Dates: start: 20111205
  2. AVASTIN [Suspect]
     Indication: COLON CANCER
     Route: 042
     Dates: start: 20111205
  3. LEVOLEUCOVORIN CALCIUM [Suspect]
     Indication: COLON CANCER
     Route: 042
     Dates: start: 20111205
  4. FLUOROURACIL [Suspect]
     Indication: COLON CANCER
     Route: 042
     Dates: start: 20111205
  5. OXALIPLATIN [Suspect]
     Indication: COLON CANCER
     Route: 042
     Dates: start: 20111205

REACTIONS (3)
  - HYPERTENSION [None]
  - CARDIOVASCULAR DISORDER [None]
  - NAUSEA [None]
